FAERS Safety Report 8575133-9 (Version None)
Quarter: 2012Q3

REPORT INFORMATION
  Report Type: 
  Country: None (occurrence: None)
  Receive Date: 20120807
  Receipt Date: 20120802
  Transmission Date: 20120928
  Serious: Yes (Hospitalization)
  Sender: FDA-Public Use
  Company Number: BR-PFIZER INC-2012188234

PATIENT
  Age: 65 Year
  Sex: Male

DRUGS (3)
  1. ALPRAZOLAM [Concomitant]
     Dosage: UNK
  2. CEBRILIN [Concomitant]
     Dosage: UNK
  3. GEODON [Suspect]
     Dosage: UNK
     Route: 048

REACTIONS (3)
  - DEPRESSION [None]
  - MENTAL DISORDER [None]
  - ABNORMAL BEHAVIOUR [None]
